FAERS Safety Report 8178370-0 (Version None)
Quarter: 2012Q1

REPORT INFORMATION
  Report Type: 
  Country: None (occurrence: None)
  Receive Date: 20120301
  Receipt Date: 20120220
  Transmission Date: 20120608
  Serious: Yes (Hospitalization)
  Sender: FDA-Public Use
  Company Number: US-BAXTER-2012BH004806

PATIENT
  Sex: Female

DRUGS (1)
  1. DIANEAL [Suspect]
     Indication: PERITONEAL DIALYSIS
     Route: 033

REACTIONS (8)
  - DEHYDRATION [None]
  - WOUND [None]
  - COUGH [None]
  - ASTHENIA [None]
  - DYSPHONIA [None]
  - PERITONEAL CLOUDY EFFLUENT [None]
  - IMPAIRED HEALING [None]
  - VOMITING [None]
